FAERS Safety Report 15116015 (Version 2)
Quarter: 2018Q3

REPORT INFORMATION
  Report Type: Report from Study
  Country: MX (occurrence: MX)
  Receive Date: 20180706
  Receipt Date: 20180709
  Transmission Date: 20181010
  Serious: Yes (Death, Other)
  Sender: FDA-Public Use
  Company Number: PHHY2018MX039127

PATIENT
  Age: 18 Year
  Sex: Male

DRUGS (1)
  1. REVOLADE [Suspect]
     Active Substance: ELTROMBOPAG
     Indication: BONE MARROW FAILURE
     Dosage: 25 MG, QD
     Route: 048
     Dates: start: 201711, end: 201712

REACTIONS (3)
  - Product use in unapproved indication [Unknown]
  - Blood pressure decreased [Unknown]
  - Bone marrow failure [Fatal]

NARRATIVE: CASE EVENT DATE: 201711
